FAERS Safety Report 16999188 (Version 2)
Quarter: 2020Q3

REPORT INFORMATION
  Report Type: Report from Study
  Country: HR (occurrence: HR)
  Receive Date: 20191106
  Receipt Date: 20191128
  Transmission Date: 20201105
  Serious: Yes (Hospitalization)
  Sender: FDA-Public Use
  Company Number: HR-ROCHE-2454670

PATIENT
  Age: 59 Year
  Sex: Female

DRUGS (2)
  1. ALECTINIB. [Suspect]
     Active Substance: ALECTINIB
     Indication: DIFFUSE LARGE B-CELL LYMPHOMA RECURRENT
     Route: 048
     Dates: start: 201906
  2. ISONIAZID. [Concomitant]
     Active Substance: ISONIAZID

REACTIONS (1)
  - Pulmonary granuloma [Not Recovered/Not Resolved]

NARRATIVE: CASE EVENT DATE: 20190919
